FAERS Safety Report 6958585-7 (Version None)
Quarter: 2010Q3

REPORT INFORMATION
  Report Type: 
  Country: None (occurrence: None)
  Receive Date: 20100831
  Receipt Date: 20100824
  Transmission Date: 20110219
  Serious: Yes (Hospitalization, Other)
  Sender: FDA-Public Use
  Company Number: DE-ROXANE LABORATORIES, INC.-2010-RO-01132RO

PATIENT
  Age: 54 Year
  Sex: Female

DRUGS (3)
  1. METHOTREXATE [Suspect]
     Indication: METASTASES TO MENINGES
     Route: 037
  2. DEXAMETHASONE [Suspect]
     Indication: METASTASES TO MENINGES
  3. NEUPOGEN [Suspect]

REACTIONS (9)
  - DRUG HYPERSENSITIVITY [None]
  - DRUG TOXICITY [None]
  - FAECAL INCONTINENCE [None]
  - GASTROINTESTINAL TOXICITY [None]
  - HAEMATOTOXICITY [None]
  - MYELOPATHY [None]
  - NEUTROPENIA [None]
  - PARAPARESIS [None]
  - URINARY RETENTION [None]
